FAERS Safety Report 18737059 (Version 1)
Quarter: 2021Q1

REPORT INFORMATION
  Report Type: Spontaneous
  Country: CN (occurrence: CN)
  Receive Date: 20210113
  Receipt Date: 20210113
  Transmission Date: 20210419
  Serious: Yes (Hospitalization, Other)
  Sender: FDA-Public Use
  Company Number: CN-PFIZER INC-2021015837

PATIENT
  Age: 63 Year
  Sex: Male

DRUGS (16)
  1. METHYLPREDNISOLONE. [Suspect]
     Active Substance: METHYLPREDNISOLONE
     Indication: IMMUNE-MEDIATED ENCEPHALITIS
     Dosage: 60 MG, 1X/DAY
     Route: 042
  2. CYCLOPHOSPHAMIDE. [Suspect]
     Active Substance: CYCLOPHOSPHAMIDE
     Indication: IMMUNE-MEDIATED ENCEPHALITIS
     Dosage: 0.4 G, WEEKLY (ONCE PER WEEK)
  3. SEROTONIN [Concomitant]
     Active Substance: SEROTONIN
     Indication: HYPOTENSION
     Dosage: SUGAR
  4. DOPAMINE [Concomitant]
     Active Substance: DOPAMINE HYDROCHLORIDE
     Dosage: DOSAGE ADJUSTED
  5. DOPAMINE [Concomitant]
     Active Substance: DOPAMINE HYDROCHLORIDE
     Indication: HYPOTENSION
     Dosage: CONTINUOUSLY PUMPED (SUGAR)
  6. QUETIAPINE FUMARATE. [Concomitant]
     Active Substance: QUETIAPINE FUMARATE
     Indication: PSYCHIATRIC SYMPTOM
     Dosage: 0.2 G, 1X/DAY (NIGHT)
  7. PIPERACILLIN SODIUM/TAZOBACTAM SODIUM [Concomitant]
     Active Substance: PIPERACILLIN SODIUM\TAZOBACTAM SODIUM
     Indication: BACTERAEMIA
  8. METHYLPREDNISOLONE. [Suspect]
     Active Substance: METHYLPREDNISOLONE
     Dosage: 1000 MG, 1X/DAY
     Route: 042
  9. DOPAMINE [Concomitant]
     Active Substance: DOPAMINE HYDROCHLORIDE
     Dosage: UNK
  10. METHYLPREDNISOLONE. [Suspect]
     Active Substance: METHYLPREDNISOLONE
     Dosage: 500 MG, 1X/DAY (REDUCED TO 500MG ONCE PER DAY AND THEN DECREASED ONCE PER 3 DAYS)
     Route: 042
  11. ARAMINE [Concomitant]
     Active Substance: METARAMINOL BITARTRATE
     Indication: HYPOTENSION
     Dosage: SUGAR
  12. HALOPERIDOL. [Concomitant]
     Active Substance: HALOPERIDOL
     Indication: PSYCHIATRIC SYMPTOM
     Dosage: 5 MG, AS NEEDED (AS NECESSARY)
     Route: 030
  13. SALINE [SODIUM CHLORIDE] [Concomitant]
     Active Substance: SODIUM CHLORIDE
     Indication: HYPOTENSION
     Dosage: 1000 ML(SUGAR)
  14. LEVETIRACETAM. [Concomitant]
     Active Substance: LEVETIRACETAM
     Indication: SEIZURE
     Dosage: 500 MG, 2X/DAY (12H)
  15. METHYLPREDNISOLONE. [Suspect]
     Active Substance: METHYLPREDNISOLONE
     Dosage: DECREASED ONCE PER 3 DAYS
     Route: 042
  16. GLUCOSE [Concomitant]
     Active Substance: DEXTROSE
     Indication: HYPOTENSION
     Dosage: 1000 ML (SUGAR)

REACTIONS (1)
  - Klebsiella infection [Unknown]
